FAERS Safety Report 8328290 (Version 8)
Quarter: 2020Q3

REPORT INFORMATION
  Report Type: Report from Study
  Country: US (occurrence: US)
  Receive Date: 20120110
  Receipt Date: 20140606
  Transmission Date: 20201104
  Serious: Yes (Other)
  Sender: FDA-Public Use
  Company Number: US-JNJFOC-20120101078

PATIENT
  Age: 12 Year
  Sex: Female
  Weight: 21 kg

DRUGS (19)
  1. CISAPRIDE [Suspect]
     Active Substance: CISAPRIDE
     Indication: GASTROOESOPHAGEAL REFLUX DISEASE
     Route: 048
     Dates: start: 20120222
  2. ALIGN NOS [Concomitant]
     Indication: PROBIOTIC THERAPY
     Route: 065
     Dates: start: 20100901
  3. CALCIUM/MAGNESIUM/ZINC [Concomitant]
     Indication: NUTRITIONAL SUPPLEMENTATION
     Route: 065
  4. CISAPRIDE [Suspect]
     Active Substance: CISAPRIDE
     Indication: GASTROINTESTINAL MOTILITY DISORDER
     Dosage: DOSE PRESCRIBED? 1.8 MG 4 TIMES A DAY AT A TOTAL DAILY DOSE OF 7.2 MG
     Route: 048
     Dates: start: 20110310, end: 20120104
  5. FLAGYL [Concomitant]
     Active Substance: METRONIDAZOLE\METRONIDAZOLE HYDROCHLORIDE
     Indication: FLATULENCE
     Route: 065
     Dates: start: 20101220
  6. ZYRTEC [Concomitant]
     Active Substance: CETIRIZINE HYDROCHLORIDE
     Indication: NASAL CONGESTION
     Route: 065
     Dates: start: 20091026
  7. PREVACID [Concomitant]
     Active Substance: LANSOPRAZOLE
     Indication: ANTACID THERAPY
     Route: 065
  8. CISAPRIDE [Suspect]
     Active Substance: CISAPRIDE
     Indication: GASTROOESOPHAGEAL REFLUX DISEASE
     Dosage: DOSE PRESCRIBED? 1.8 MG 4 TIMES A DAY AT A TOTAL DAILY DOSE OF 7.2 MG
     Route: 048
     Dates: start: 20110310, end: 20120104
  9. UNKNOWN MEDICATION [Concomitant]
     Active Substance: UNSPECIFIED INGREDIENT
     Indication: NUTRITIONAL SUPPLEMENTATION
     Route: 065
  10. ACACIA. [Concomitant]
     Active Substance: ACACIA
     Indication: IRRITABLE BOWEL SYNDROME
     Route: 065
     Dates: start: 20090426, end: 20110825
  11. CISAPRIDE [Suspect]
     Active Substance: CISAPRIDE
     Indication: GASTROINTESTINAL MOTILITY DISORDER
     Dosage: DOSE PRESCRIBED?2.20 AT A TOTAL DAILY DOSE OF 9
     Route: 048
     Dates: end: 20080213
  12. CISAPRIDE [Suspect]
     Active Substance: CISAPRIDE
     Indication: GASTROOESOPHAGEAL REFLUX DISEASE
     Dosage: DOSE PRESCRIBED?2.20 AT A TOTAL DAILY DOSE OF 9
     Route: 048
     Dates: end: 20080213
  13. OMNICEF [Concomitant]
     Active Substance: CEFDINIR
     Indication: EAR INFECTION
     Route: 065
     Dates: start: 20111117, end: 20111127
  14. FLAGYL [Concomitant]
     Active Substance: METRONIDAZOLE\METRONIDAZOLE HYDROCHLORIDE
     Indication: DIARRHOEA
     Route: 065
     Dates: start: 20101220
  15. METRONIDAZOLE. [Concomitant]
     Active Substance: METRONIDAZOLE
     Indication: CLOSTRIDIUM DIFFICILE INFECTION
     Route: 065
     Dates: start: 20111205, end: 20111219
  16. RIFAXIMIN. [Concomitant]
     Active Substance: RIFAXIMIN
     Indication: CLOSTRIDIUM DIFFICILE INFECTION
     Route: 065
     Dates: start: 20111213, end: 20111216
  17. CISAPRIDE [Suspect]
     Active Substance: CISAPRIDE
     Indication: GASTROINTESTINAL MOTILITY DISORDER
     Route: 048
     Dates: start: 20120222
  18. DSS (DIOCTYL SODIUM SULFOSUCCINATE) [Concomitant]
     Indication: ABNORMAL FAECES
     Route: 065
     Dates: start: 20090326, end: 20110428
  19. HYOSCYAMINE SULPHATE [Concomitant]
     Indication: GASTROINTESTINAL PAIN
     Route: 065
     Dates: start: 20111213

REACTIONS (1)
  - Electrocardiogram QT prolonged [Recovered/Resolved]

NARRATIVE: CASE EVENT DATE: 20111215
